FAERS Safety Report 8761994 (Version 8)
Quarter: 2013Q1

REPORT INFORMATION
  Report Type: Spontaneous
  Country: US (occurrence: US)
  Receive Date: 20120830
  Receipt Date: 20130110
  Transmission Date: 20140127
  Serious: Yes (Hospitalization, Other)
  Sender: FDA-Public Use
  Company Number: US-009507513-1205USA04810

PATIENT
  Sex: 0

DRUGS (6)
  1. FOSAMAX [Suspect]
     Indication: OSTEOPOROSIS
     Dosage: 70 MG, QW
     Route: 048
     Dates: start: 200103, end: 201003
  2. FOSAMAX [Suspect]
     Indication: OSTEOPENIA
  3. FOSAMAX [Suspect]
     Indication: OSTEOPOROSIS
     Dosage: 70 MG, UNK
     Route: 048
  4. FOSAMAX [Suspect]
     Indication: OSTEOPENIA
  5. ALENDRONATE SODIUM [Suspect]
     Indication: OSTEOPOROSIS
     Dosage: 70 MG, UNK
  6. ALENDRONATE SODIUM [Suspect]
     Indication: OSTEOPENIA

REACTIONS (16)
  - Femur fracture [Unknown]
  - Femur fracture [Unknown]
  - Fall [Unknown]
  - Surgery [Unknown]
  - Intramedullary rod insertion [Unknown]
  - Stress fracture [Recovered/Resolved]
  - Low turnover osteopathy [Unknown]
  - Muscular weakness [Unknown]
  - Lymphadenopathy [Unknown]
  - Depressed mood [Unknown]
  - Headache [Unknown]
  - Hypoaesthesia [Unknown]
  - Paraesthesia [Unknown]
  - Insomnia [Unknown]
  - Anxiety [Unknown]
  - Foot fracture [Not Recovered/Not Resolved]
